FAERS Safety Report 21210165 (Version 2)
Quarter: 2022Q4

REPORT INFORMATION
  Report Type: Other
  Country: CA (occurrence: None)
  Receive Date: 20220814
  Receipt Date: 20221003
  Transmission Date: 20230112
  Serious: Yes (Death)
  Sender: FDA-Public Use
  Company Number: CA-ROCHE-3159756

PATIENT
  Age: 73 Year
  Sex: Female

DRUGS (11)
  1. RITUXAN [Suspect]
     Active Substance: RITUXIMAB
     Indication: Rheumatoid arthritis
     Route: 042
     Dates: start: 20201130, end: 20211110
  2. RITUXAN [Suspect]
     Active Substance: RITUXIMAB
     Dosage: DAY 1,15
     Route: 042
     Dates: start: 20140121, end: 20211110
  3. ELAVIL [Concomitant]
     Active Substance: AMITRIPTYLINE HYDROCHLORIDE
     Dosage: 2 TABS AT HS
  4. FOSAMAX [Concomitant]
     Active Substance: ALENDRONATE SODIUM
  5. PREDNISONE [Concomitant]
     Active Substance: PREDNISONE
     Dosage: 5-7.5 MG MILLIGRAM(S)
     Route: 048
  6. RABEPRAZOLE [Concomitant]
     Active Substance: RABEPRAZOLE
  7. ACETAMINOPHEN [Concomitant]
     Active Substance: ACETAMINOPHEN
     Route: 048
     Dates: start: 20140121
  8. CALCIUM [Concomitant]
     Active Substance: CALCIUM
  9. DIPHENHYDRAMINE HYDROCHLORIDE [Concomitant]
     Active Substance: DIPHENHYDRAMINE HYDROCHLORIDE
     Indication: Premedication
     Route: 048
     Dates: start: 20140121
  10. METHYLPREDNISOLONE [Concomitant]
     Active Substance: METHYLPREDNISOLONE
     Route: 042
     Dates: start: 20140121
  11. SYNTHROID [Concomitant]
     Active Substance: LEVOTHYROXINE SODIUM

REACTIONS (1)
  - COVID-19 [Fatal]

NARRATIVE: CASE EVENT DATE: 20220806
